FAERS Safety Report 5179166-4 (Version None)
Quarter: 2006Q4

REPORT INFORMATION
  Report Type: 
  Country: None (occurrence: None)
  Receive Date: 20061219
  Receipt Date: 20060830
  Transmission Date: 20070319
  Serious: Yes (Life-Threatening, Hospitalization, Other)
  Sender: FDA-Public Use
  Company Number: FR-BRISTOL-MYERS SQUIBB COMPANY-13493408

PATIENT
  Age: 73 Year
  Sex: Male

DRUGS (1)
  1. TAXOL [Suspect]
     Route: 042
     Dates: start: 20060731, end: 20060731

REACTIONS (2)
  - MACULAR OEDEMA [None]
  - PULMONARY OEDEMA [None]
